FAERS Safety Report 8800698 (Version 2)
Quarter: 2015Q2

REPORT INFORMATION
  Report Type: Report from Study
  Country: US (occurrence: US)
  Receive Date: 20120921
  Receipt Date: 20150622
  Transmission Date: 20150821
  Serious: Yes (Death)
  Sender: FDA-Public Use
  Company Number: US-ROCHE-1123677

PATIENT
  Sex: Male

DRUGS (32)
  1. TAXOTERE [Concomitant]
     Active Substance: DOCETAXEL
     Route: 065
  2. BENADRYL [Concomitant]
     Active Substance: DIPHENHYDRAMINE HYDROCHLORIDE
     Route: 065
  3. LUPRON [Concomitant]
     Active Substance: LEUPROLIDE ACETATE
     Dosage: FOR 12 WEEKS
     Route: 065
  4. REVLIMID [Concomitant]
     Active Substance: LENALIDOMIDE
  5. NOVOLOG [Concomitant]
     Active Substance: INSULIN ASPART
  6. LANSOPRAZOLE. [Concomitant]
     Active Substance: LANSOPRAZOLE
     Route: 065
  7. AVASTIN [Suspect]
     Active Substance: BEVACIZUMAB
     Route: 042
  8. THALIDOMIDE [Concomitant]
     Active Substance: THALIDOMIDE
  9. NIACIN. [Concomitant]
     Active Substance: NIACIN
     Route: 065
  10. NEURONTIN [Concomitant]
     Active Substance: GABAPENTIN
     Route: 065
  11. TAXOTERE [Concomitant]
     Active Substance: DOCETAXEL
     Route: 065
  12. DECADRON [Concomitant]
     Active Substance: DEXAMETHASONE
     Route: 042
  13. ZANTAC [Concomitant]
     Active Substance: RANITIDINE HYDROCHLORIDE
     Route: 042
  14. LOVAZA [Concomitant]
     Active Substance: OMEGA-3-ACID ETHYL ESTERS
     Route: 065
  15. SYNTHROID [Concomitant]
     Active Substance: LEVOTHYROXINE SODIUM
     Route: 065
  16. TOBRADEX [Concomitant]
     Active Substance: DEXAMETHASONE\TOBRAMYCIN
  17. NEXIUM [Concomitant]
     Active Substance: ESOMEPRAZOLE MAGNESIUM
  18. CYMBALTA [Concomitant]
     Active Substance: DULOXETINE HYDROCHLORIDE
     Route: 065
  19. NEURONTIN [Concomitant]
     Active Substance: GABAPENTIN
     Route: 065
  20. AVASTIN [Suspect]
     Active Substance: BEVACIZUMAB
     Indication: PROSTATE CANCER
     Route: 042
  21. CARBOPLATIN. [Concomitant]
     Active Substance: CARBOPLATIN
  22. ALOXI [Concomitant]
     Active Substance: PALONOSETRON HYDROCHLORIDE
     Route: 065
  23. LANTUS [Concomitant]
     Active Substance: INSULIN GLARGINE
  24. LOVENOX [Concomitant]
     Active Substance: ENOXAPARIN SODIUM
     Route: 065
  25. ESTINYL [Concomitant]
     Active Substance: ETHINYL ESTRADIOL
     Route: 065
  26. ALPHA LIPOIC ACID [Concomitant]
     Active Substance: .ALPHA.-LIPOIC ACID
     Route: 065
  27. PROSCAR [Concomitant]
     Active Substance: FINASTERIDE
  28. AVASTIN [Suspect]
     Active Substance: BEVACIZUMAB
     Route: 065
  29. AVASTIN [Suspect]
     Active Substance: BEVACIZUMAB
     Route: 042
  30. PROCRIT [Concomitant]
     Active Substance: ERYTHROPOIETIN
  31. CALCITRIOL. [Concomitant]
     Active Substance: CALCITRIOL
     Route: 065
  32. LEUKINE [Concomitant]
     Active Substance: SARGRAMOSTIM

REACTIONS (3)
  - Off label use [Unknown]
  - Pain in extremity [Unknown]
  - Death [Fatal]
